FAERS Safety Report 13950511 (Version 1)
Quarter: 2017Q3

REPORT INFORMATION
  Report Type: Spontaneous
  Country: US (occurrence: US)
  Receive Date: 20170908
  Receipt Date: 20170908
  Transmission Date: 20171128
  Serious: Yes (Hospitalization, Other)
  Sender: FDA-Public Use
  Company Number: US-GLAXOSMITHKLINE-US2017135901

PATIENT
  Age: 80 Year
  Sex: Male

DRUGS (11)
  1. TRAZODONE [Concomitant]
     Active Substance: TRAZODONE HYDROCHLORIDE
  2. BREO ELLIPTA [Suspect]
     Active Substance: FLUTICASONE FUROATE\VILANTEROL TRIFENATATE
     Indication: CHRONIC OBSTRUCTIVE PULMONARY DISEASE
     Dosage: 1 PUFF(S), QD
     Route: 055
     Dates: start: 201703
  3. PRAVASTATIN. [Concomitant]
     Active Substance: PRAVASTATIN
  4. ROPINIROLE. [Concomitant]
     Active Substance: ROPINIROLE
  5. XARELTO [Concomitant]
     Active Substance: RIVAROXABAN
  6. GABAPENTIN. [Concomitant]
     Active Substance: GABAPENTIN
  7. HYDROCODONE [Concomitant]
     Active Substance: HYDROCODONE
  8. METOPROLOL. [Concomitant]
     Active Substance: METOPROLOL
  9. TRAMADOL. [Concomitant]
     Active Substance: TRAMADOL
  10. TRAVATAN [Concomitant]
     Active Substance: TRAVOPROST
  11. ASPIRIN (BABY) [Concomitant]
     Active Substance: ASPIRIN

REACTIONS (11)
  - Pulmonary mass [Unknown]
  - Lung disorder [Unknown]
  - Therapy cessation [Unknown]
  - Mechanical ventilation [Unknown]
  - Coma [Recovered/Resolved]
  - Intensive care [Unknown]
  - Bacteraemia [Recovering/Resolving]
  - Pleural effusion [Unknown]
  - Pneumonia [Recovering/Resolving]
  - Septic shock [Recovering/Resolving]
  - Blood pressure decreased [Recovering/Resolving]

NARRATIVE: CASE EVENT DATE: 201707
